FAERS Safety Report 10404855 (Version 1)
Quarter: 2014Q3

REPORT INFORMATION
  Report Type: Spontaneous
  Country: IN (occurrence: IN)
  Receive Date: 20140825
  Receipt Date: 20140825
  Transmission Date: 20150326
  Serious: Yes (Other)
  Sender: FDA-Public Use
  Company Number: IN-UCBSA-2014009502

PATIENT
  Age: 11 Year
  Sex: Male

DRUGS (2)
  1. KEPPRA [Suspect]
     Active Substance: LEVETIRACETAM
     Indication: CONVULSION
     Dosage: 250 MG, 2X/DAY (BID)
  2. VALPROATE SODIUM. [Concomitant]
     Active Substance: VALPROATE SODIUM
     Dosage: DOSE UNKNOWN

REACTIONS (3)
  - Hypersensitivity vasculitis [Recovered/Resolved]
  - Pruritus generalised [Recovered/Resolved]
  - Rash [Recovered/Resolved]
